FAERS Safety Report 7892388-4 (Version None)
Quarter: 2011Q4

REPORT INFORMATION
  Report Type: 
  Country: None (occurrence: None)
  Receive Date: 20111103
  Receipt Date: 20111103
  Transmission Date: 20120403
  Serious: Yes (Other)
  Sender: FDA-Public Use
  Company Number: None

PATIENT
  Sex: Female
  Weight: 68.9467 kg

DRUGS (1)
  1. SUTENT [Suspect]
     Indication: RENAL CELL CARCINOMA
     Dosage: 50MG PO PER 28 DAYS THEN 14 DAYS OFF
     Route: 048
     Dates: start: 20110804, end: 20111027

REACTIONS (1)
  - NO THERAPEUTIC RESPONSE [None]
